FAERS Safety Report 5559456-3 (Version None)
Quarter: 2007Q4

REPORT INFORMATION
  Report Type: 
  Country: None (occurrence: None)
  Receive Date: 20071214
  Receipt Date: 20070928
  Transmission Date: 20080405
  Serious: No
  Sender: FDA-Public Use
  Company Number: US-ABBOTT-07P-163-0419379-00

PATIENT
  Sex: Female
  Weight: 61.29 kg

DRUGS (11)
  1. HUMIRA [Suspect]
     Indication: CROHN'S DISEASE
     Route: 058
     Dates: start: 20070701, end: 20070801
  2. HUMIRA [Suspect]
     Route: 058
     Dates: start: 20070601, end: 20070601
  3. HUMIRA [Suspect]
     Route: 058
     Dates: start: 20070601, end: 20070701
  4. HUMIRA [Suspect]
     Route: 058
     Dates: start: 20070913
  5. MESALAMINE [Concomitant]
     Indication: CROHN'S DISEASE
     Route: 048
  6. DICYCLOMINE HCL [Concomitant]
     Indication: MUSCLE SPASMS
     Route: 048
  7. AMITRIPTLINE HCL [Concomitant]
     Indication: MIGRAINE
     Route: 048
  8. ATENOLOL [Concomitant]
     Indication: CARDIAC DISORDER
     Route: 048
  9. RANITIDINE HYDROCHLORIDE [Concomitant]
     Indication: DYSPEPSIA
     Route: 048
  10. PROMETHAZINE [Concomitant]
     Indication: NAUSEA
     Route: 048
  11. DARVOCET-N 100 [Concomitant]
     Indication: PAIN
     Route: 048

REACTIONS (3)
  - HYPOAESTHESIA [None]
  - LYMPHADENOPATHY [None]
  - RASH [None]
